FAERS Safety Report 7812634-2 (Version None)
Quarter: 2011Q4

REPORT INFORMATION
  Report Type: 
  Country: None (occurrence: None)
  Receive Date: 20111013
  Receipt Date: 20110930
  Transmission Date: 20120403
  Serious: Yes (Hospitalization)
  Sender: FDA-Public Use
  Company Number: US-BAYER-2011-021737

PATIENT
  Age: 40 Year
  Sex: Female
  Weight: 79.819 kg

DRUGS (7)
  1. XANAX [Concomitant]
  2. YAZ [Suspect]
     Dosage: UNK
     Dates: start: 20081201, end: 20091101
  3. PAXIL [Concomitant]
     Indication: DEPRESSION
     Dosage: 40 MG, QD
     Dates: start: 20081201, end: 20101201
  4. FUROSEMIDE [Concomitant]
     Dosage: UNK
     Dates: start: 20081201, end: 20090901
  5. CIPROFLOXACIN [Concomitant]
  6. EXLAX [PHENOLPHTHALEIN] [Concomitant]
  7. PAXIL [Concomitant]
     Indication: PREMENSTRUAL SYNDROME

REACTIONS (3)
  - CHOLECYSTITIS CHRONIC [None]
  - CHOLELITHIASIS [None]
  - PAIN [None]
